FAERS Safety Report 5935214-2 (Version None)
Quarter: 2008Q4

REPORT INFORMATION
  Report Type: 
  Country: None (occurrence: None)
  Receive Date: 20081028
  Receipt Date: 20081017
  Transmission Date: 20090506
  Serious: Yes (Death)
  Sender: FDA-Public Use
  Company Number: GXKR2008IT09945

PATIENT
  Age: 75 Year
  Sex: Male

DRUGS (4)
  1. MITOXANTRONE [Suspect]
     Indication: FOLLICLE CENTRE LYMPHOMA, FOLLICULAR GRADE I, II, III STAGE IV
     Dosage: 10 MG/M2, DAY 1, 4 CYCLES, UNKNOWN
     Dates: start: 20010701
  2. DEXAMETHASONE [Suspect]
     Indication: FOLLICLE CENTRE LYMPHOMA, FOLLICULAR GRADE I, II, III STAGE IV
     Dosage: 20 MG, FOR DAYS 1-5, 4 CYCLES, UNKNOWN
     Dates: start: 20010701
  3. FLUDARABINE (FLUDARABINE) UNKNOWN [Suspect]
     Indication: FOLLICLE CENTRE LYMPHOMA, FOLLICULAR GRADE I, II, III STAGE IV
     Dosage: 25 MG/M2, DAYS 1-3, 4 CYCLES, UNKNOWN
     Dates: start: 20010701
  4. RITUXIMAB (RITUXIMAB) UNKNOWN [Suspect]
     Indication: FOLLICLE CENTRE LYMPHOMA, FOLLICULAR GRADE I, II, III STAGE IV
     Dosage: 4 CYCLES, UNKNOWN
     Dates: start: 20010701

REACTIONS (4)
  - ACUTE MYELOID LEUKAEMIA [None]
  - BONE MARROW FAILURE [None]
  - PANCYTOPENIA [None]
  - PYREXIA [None]
